FAERS Safety Report 17512142 (Version 2)
Quarter: 2020Q1

REPORT INFORMATION
  Report Type: Spontaneous
  Country: US (occurrence: US)
  Receive Date: 20200308
  Receipt Date: 20200316
  Transmission Date: 20200409
  Serious: Yes (Other)
  Sender: FDA-Public Use
  Company Number: US-ASTRAZENECA-2019SE10207

PATIENT
  Age: 19550 Day

DRUGS (22)
  1. NEXIUM [Suspect]
     Active Substance: ESOMEPRAZOLE MAGNESIUM
     Dosage: VARIOUS DATES AND YEARS BEGINNING IN APPROXIMATELY 2000
     Route: 048
     Dates: start: 2000
  2. PREVACID [Suspect]
     Active Substance: LANSOPRAZOLE
     Route: 065
     Dates: start: 20000123
  3. CELEBREX [Concomitant]
     Active Substance: CELECOXIB
  4. TRIMOX [Concomitant]
     Active Substance: AMOXICILLIN
  5. ZITHROMAX [Concomitant]
     Active Substance: AZITHROMYCIN DIHYDRATE
  6. EFFEXOR [Concomitant]
     Active Substance: VENLAFAXINE HYDROCHLORIDE
  7. METOCLOPRAMIDE. [Concomitant]
     Active Substance: METOCLOPRAMIDE
  8. AMITRIPTYLENE HCL [Concomitant]
  9. LEVAQUIN [Concomitant]
     Active Substance: LEVOFLOXACIN
  10. CLINDAMYCIN HCL [Concomitant]
     Active Substance: CLINDAMYCIN HYDROCHLORIDE
  11. KLOR-CON [Concomitant]
     Active Substance: POTASSIUM CHLORIDE
  12. MAXALT-MLT [Concomitant]
     Active Substance: RIZATRIPTAN BENZOATE
  13. NEXIUM [Suspect]
     Active Substance: ESOMEPRAZOLE MAGNESIUM
     Route: 048
     Dates: start: 20060926
  14. CLONAZEPAM. [Concomitant]
     Active Substance: CLONAZEPAM
  15. METRONIDAZOLE. [Concomitant]
     Active Substance: METRONIDAZOLE
  16. DIPHENOXYLATE [Concomitant]
     Active Substance: DIPHENOXYLATE
  17. LIPITOR [Concomitant]
     Active Substance: ATORVASTATIN CALCIUM
  18. DOXYCYCLINE HYCLATE. [Concomitant]
     Active Substance: DOXYCYCLINE HYCLATE
  19. PREVACID [Suspect]
     Active Substance: LANSOPRAZOLE
     Dosage: VARIOUS DATES AND YEARS BEGINNING IN APPROXIMATELY 2000
     Route: 065
     Dates: start: 2000
  20. TOPROL XL [Concomitant]
     Active Substance: METOPROLOL SUCCINATE
  21. CEPHALEXIN. [Concomitant]
     Active Substance: CEPHALEXIN
  22. FUROSEMIDE. [Concomitant]
     Active Substance: FUROSEMIDE

REACTIONS (3)
  - Renal failure [Unknown]
  - Rebound acid hypersecretion [Unknown]
  - Chronic kidney disease [Unknown]

NARRATIVE: CASE EVENT DATE: 20180416
